FAERS Safety Report 7107978-6 (Version None)
Quarter: 2010Q4

REPORT INFORMATION
  Report Type: 
  Country: None (occurrence: None)
  Receive Date: 20101117
  Receipt Date: 20101109
  Transmission Date: 20110411
  Serious: Yes (Hospitalization)
  Sender: FDA-Public Use
  Company Number: DE-JNJFOC-20101103416

PATIENT
  Age: 60 Year

DRUGS (3)
  1. CAELYX [Suspect]
     Indication: BREAST CANCER METASTATIC
     Dosage: 5TH LINE
     Route: 042
  2. FASLODEX [Suspect]
     Indication: BREAST CANCER METASTATIC
     Dosage: 5TH LINE
     Route: 065
  3. BISPHOSPHONATES [Suspect]
     Indication: BREAST CANCER METASTATIC
     Dosage: 5TH LINE
     Route: 065

REACTIONS (1)
  - HYPOGLYCAEMIA [None]
